FAERS Safety Report 8000589-X (Version None)
Quarter: 2011Q4

REPORT INFORMATION
  Report Type: 
  Country: None (occurrence: None)
  Receive Date: 20111216
  Receipt Date: 20111208
  Transmission Date: 20120403
  Serious: Yes (Other)
  Sender: FDA-Public Use
  Company Number: AUR-APL-2011-05953

PATIENT
  Age: 29 Year
  Sex: Male

DRUGS (4)
  1. NAPROXEN [Suspect]
     Indication: BACK PAIN
     Dates: start: 20101018
  2. NAPROXEN [Suspect]
     Indication: PHLEBITIS
     Dates: start: 20101018
  3. IBUPROFEN [Suspect]
     Indication: TONSILLITIS
     Dosage: (2 DOSAGE FORMS, 1 D)
     Dates: start: 20110401
  4. PHENOXYMETHYLPENICILLLIN (PHENOXYMETHYLPENICILLIN) [Suspect]
     Indication: TONSILLITIS
     Dosage: (250 MG)
     Dates: start: 20110401

REACTIONS (12)
  - DISTURBANCE IN ATTENTION [None]
  - MUSCULAR WEAKNESS [None]
  - HYPOAESTHESIA [None]
  - HEART RATE INCREASED [None]
  - FEELING ABNORMAL [None]
  - SENSATION OF HEAVINESS [None]
  - REACTION TO DRUG EXCIPIENTS [None]
  - DYSPNOEA [None]
  - NAUSEA [None]
  - GASTRIC PH DECREASED [None]
  - ARTHROPATHY [None]
  - DISORIENTATION [None]
